FAERS Safety Report 18684521 (Version 1)
Quarter: 2020Q4

REPORT INFORMATION
  Report Type: Spontaneous
  Country: US (occurrence: US)
  Receive Date: 20201230
  Receipt Date: 20201230
  Transmission Date: 20210114
  Serious: No
  Sender: FDA-Public Use
  Company Number: US-INDIVIOR US-INDV-127381-2020

PATIENT
  Age: 51 Year
  Sex: Female

DRUGS (2)
  1. SUBLOCADE [Suspect]
     Active Substance: BUPRENORPHINE
     Indication: DRUG DEPENDENCE
     Dosage: 300 MILLIGRAM, QMO
     Route: 058
     Dates: start: 20201112
  2. KLONOPIN [Concomitant]
     Active Substance: CLONAZEPAM
     Indication: ANXIETY
     Dosage: 1 MILLIGRAM, PRN
     Route: 065

REACTIONS (9)
  - Skin burning sensation [Recovering/Resolving]
  - Injection site pain [Recovering/Resolving]
  - Insomnia [Recovered/Resolved]
  - Back pain [Unknown]
  - Injection site rash [Not Recovered/Not Resolved]
  - Fatigue [Unknown]
  - Erythema [Recovering/Resolving]
  - Injection site erythema [Recovering/Resolving]
  - Psychomotor hyperactivity [Unknown]

NARRATIVE: CASE EVENT DATE: 202011
